FAERS Safety Report 8405145-7 (Version None)
Quarter: 2012Q2

REPORT INFORMATION
  Report Type: 
  Country: None (occurrence: None)
  Receive Date: 20120602
  Receipt Date: 20120521
  Transmission Date: 20120825
  Serious: Yes (Other)
  Sender: FDA-Public Use
  Company Number: BE-VALEANT-2012VX002438

PATIENT

DRUGS (3)
  1. CISPLATIN [Suspect]
     Route: 042
  2. CARBOPLATIN [Suspect]
     Dosage: DOSE UNIT:5
     Route: 042
  3. FLUOROURACIL [Suspect]
     Route: 042

REACTIONS (1)
  - SEPSIS [None]
